FAERS Safety Report 18566310 (Version 2)
Quarter: 2020Q4

REPORT INFORMATION
  Report Type: Spontaneous
  Country: US (occurrence: US)
  Receive Date: 20201201
  Receipt Date: 20201210
  Transmission Date: 20210114
  Serious: No
  Sender: FDA-Public Use
  Company Number: US-TAKEDA-US202025882

PATIENT
  Age: 8 Year
  Sex: Male
  Weight: 40.82 kg

DRUGS (1)
  1. ELAPRASE [Suspect]
     Active Substance: IDURSULFASE
     Indication: MUCOPOLYSACCHARIDOSIS II
     Dosage: 24 MILLIGRAM, 1X/WEEK
     Route: 042
     Dates: start: 20130408

REACTIONS (2)
  - Product dose omission issue [Unknown]
  - COVID-19 [Unknown]

NARRATIVE: CASE EVENT DATE: 20200725
